FAERS Safety Report 17108404 (Version 2)
Quarter: 2020Q2

REPORT INFORMATION
  Report Type: Spontaneous
  Country: US (occurrence: US)
  Receive Date: 20191204
  Receipt Date: 20200528
  Transmission Date: 20200713
  Serious: No
  Sender: FDA-Public Use
  Company Number: US-UCBSA-2017040590

PATIENT
  Age: 57 Year
  Sex: Female
  Weight: 84 kg

DRUGS (1)
  1. CIMZIA [Suspect]
     Active Substance: CERTOLIZUMAB PEGOL
     Indication: RHEUMATOID ARTHRITIS
     Dosage: UNK
     Dates: start: 20170719, end: 201710

REACTIONS (9)
  - Lethargy [Unknown]
  - Headache [Unknown]
  - Tremor [Recovered/Resolved]
  - Urticaria [Recovered/Resolved]
  - Malaise [Unknown]
  - Dizziness [Unknown]
  - Chills [Unknown]
  - Nasopharyngitis [Unknown]
  - Paraesthesia [Recovered/Resolved]

NARRATIVE: CASE EVENT DATE: 2017
